FAERS Safety Report 21118723 (Version 3)
Quarter: 2022Q3

REPORT INFORMATION
  Report Type: Report from Study
  Country: TH (occurrence: None)
  Receive Date: 20220722
  Receipt Date: 20220729
  Transmission Date: 20221027
  Serious: Yes (Death)
  Sender: FDA-Public Use
  Company Number: TH-ROCHE-3143566

PATIENT
  Age: 61 Year
  Sex: Male
  Weight: 57.4 kg

DRUGS (24)
  1. TIRAGOLUMAB [Suspect]
     Active Substance: TIRAGOLUMAB
     Indication: Oesophageal squamous cell carcinoma metastatic
     Dosage: THE START DATE OF MOST RECENT DOSE OF BLINDED TIRAGOLUMAB PRIOR TO AE AND SAE ONSET: 27/JUN/2022
     Route: 042
     Dates: start: 20210518
  2. ATEZOLIZUMAB [Suspect]
     Active Substance: ATEZOLIZUMAB
     Indication: Oesophageal squamous cell carcinoma metastatic
     Dosage: THE START DATE OF MOST RECENT DOSE OF BLINDED ATEZOLIZUMAB PRIOR TO AE AND SAE ONSET: 27/JUN/2022
     Route: 041
     Dates: start: 20210518
  3. PACLITAXEL [Suspect]
     Active Substance: PACLITAXEL
     Indication: Oesophageal squamous cell carcinoma metastatic
     Dosage: THE START DATE OF MOST RECENT DOSE OF PACLITAXEL (297 MG) PRIOR TO AE AND SAE ONSET: 31/AUG/2021.
     Route: 042
     Dates: start: 20210518
  4. CISPLATIN [Suspect]
     Active Substance: CISPLATIN
     Indication: Oesophageal squamous cell carcinoma metastatic
     Dosage: THE START DATE OF MOST RECENT DOSE OF CISPLATIN (125 MG) PRIOR TO AE AND SAE ONSET: 31/AUG/2021.
     Route: 042
     Dates: start: 20210518
  5. SENOKOT [Concomitant]
     Active Substance: SENNOSIDES
     Indication: Constipation
     Route: 065
     Dates: start: 20210621
  6. TRIAMCINOLONE [Concomitant]
     Active Substance: TRIAMCINOLONE
     Indication: Dermatitis
     Route: 061
     Dates: start: 20220221
  7. PREDNISOLONE [Concomitant]
     Active Substance: PREDNISOLONE
     Indication: Adrenal insufficiency
     Route: 048
     Dates: start: 20220418
  8. DOMPERIDONE [Concomitant]
     Active Substance: DOMPERIDONE
     Indication: Flatulence
     Route: 065
     Dates: start: 20220606
  9. METHYL SALICYLATE [Concomitant]
     Active Substance: METHYL SALICYLATE
     Indication: Myalgia
     Route: 065
     Dates: start: 20220214
  10. UREA [Concomitant]
     Active Substance: UREA
     Indication: Dermatitis
     Dates: start: 20220413
  11. NORGESIC (THAILAND) [Concomitant]
     Indication: Myalgia
     Route: 065
     Dates: start: 20220214
  12. BENADRYL (THAILAND) [Concomitant]
     Route: 065
     Dates: start: 20210920
  13. FAMOTIDINE [Concomitant]
     Active Substance: FAMOTIDINE
     Route: 065
     Dates: start: 20210920
  14. SODIUM CHLORIDE [Concomitant]
     Active Substance: SODIUM CHLORIDE
     Indication: Hyponatraemia
     Route: 048
     Dates: start: 20220415
  15. SUCCINYLCHOLINE [Concomitant]
     Active Substance: SUCCINYLCHOLINE
     Route: 042
     Dates: start: 20220718, end: 20220718
  16. ETOMIDATE [Concomitant]
     Active Substance: ETOMIDATE
     Route: 042
     Dates: start: 20220718, end: 20220718
  17. NOREPINEPHRINE [Concomitant]
     Active Substance: NOREPINEPHRINE
     Indication: Hypotension
     Route: 042
     Dates: start: 20220718, end: 20220718
  18. ENOXAPARIN [Concomitant]
     Active Substance: ENOXAPARIN
     Route: 058
     Dates: start: 20220718, end: 20220718
  19. ADENOSINE [Concomitant]
     Active Substance: ADENOSINE
     Route: 042
     Dates: start: 20220718, end: 20220718
  20. PIPERACILLIN SODIUM\TAZOBACTAM SODIUM [Concomitant]
     Active Substance: PIPERACILLIN SODIUM\TAZOBACTAM SODIUM
     Indication: Sepsis
     Route: 042
     Dates: start: 20220718, end: 20220718
  21. HYDROCORTISONE [Concomitant]
     Active Substance: HYDROCORTISONE
     Indication: Adrenal insufficiency
     Route: 042
     Dates: start: 20220718, end: 20220718
  22. INHALEX FORTE [Concomitant]
     Indication: Dyspnoea
     Route: 055
     Dates: start: 20220718, end: 20220718
  23. OMEPRAZOLE [Concomitant]
     Active Substance: OMEPRAZOLE
     Indication: Flatulence
     Route: 065
     Dates: start: 20220606
  24. ACETAMINOPHEN [Concomitant]
     Active Substance: ACETAMINOPHEN
     Indication: Headache
     Route: 065
     Dates: start: 20220623

REACTIONS (1)
  - Cardiac arrest [Fatal]

NARRATIVE: CASE EVENT DATE: 20220718
